FAERS Safety Report 22591344 (Version 1)
Quarter: 2023Q2

REPORT INFORMATION
  Report Type: Spontaneous
  Country: DE (occurrence: DE)
  Receive Date: 20230612
  Receipt Date: 20230612
  Transmission Date: 20230722
  Serious: Yes (Life-Threatening)
  Sender: FDA-Public Use
  Company Number: None

PATIENT
  Age: 79 Year
  Sex: Female
  Weight: 73 kg

DRUGS (22)
  1. MORPHINE SULFATE [Suspect]
     Active Substance: MORPHINE SULFATE
     Indication: Herpes zoster
     Dosage: 10
     Route: 048
     Dates: start: 19991021, end: 19991027
  2. CEFPODOXIME [Suspect]
     Active Substance: CEFPODOXIME
     Indication: Product used for unknown indication
     Dosage: UNK
     Route: 048
     Dates: start: 19991008, end: 19991012
  3. CEFPODOXIME [Suspect]
     Active Substance: CEFPODOXIME
     Indication: Influenza
     Dosage: UNK
     Route: 048
     Dates: start: 19991103
  4. CARBAMAZEPINE [Suspect]
     Active Substance: CARBAMAZEPINE
     Indication: Herpes zoster
     Dosage: 200MG,BID
     Route: 048
     Dates: start: 19991015
  5. ESIDRIX [Suspect]
     Active Substance: HYDROCHLOROTHIAZIDE
     Indication: Cardiac failure
     Dosage: UNK
     Route: 048
  6. BUPIVACAINE HYDROCHLORIDE [Suspect]
     Active Substance: BUPIVACAINE HYDROCHLORIDE
     Indication: Cardiac failure
     Dosage: UNK
     Route: 042
     Dates: start: 19991027, end: 19991030
  7. AMANTADINE SULFATE [Suspect]
     Active Substance: AMANTADINE SULFATE
     Indication: Herpes zoster
     Dosage: UNK
     Route: 042
     Dates: start: 19991014
  8. METAMIZOLE [Suspect]
     Active Substance: METAMIZOLE
     Indication: Herpes zoster
     Dosage: UNK
     Route: 048
     Dates: start: 19991014
  9. DICLOFENAC [Suspect]
     Active Substance: DICLOFENAC
     Indication: Herpes zoster
     Route: 048
     Dates: start: 19991014, end: 19991023
  10. PIRETANIDE\RAMIPRIL [Suspect]
     Active Substance: PIRETANIDE\RAMIPRIL
     Indication: Essential hypertension
     Dosage: UNK
     Route: 048
     Dates: start: 19991014
  11. CLAFORAN [Suspect]
     Active Substance: CEFOTAXIME SODIUM
     Indication: Product used for unknown indication
     Dosage: UNK
     Route: 042
     Dates: start: 19991101, end: 19991103
  12. NALOXONE HYDROCHLORIDE\TILIDINE HYDROCHLORIDE [Concomitant]
     Active Substance: NALOXONE HYDROCHLORIDE\TILIDINE HYDROCHLORIDE
     Indication: Herpes zoster
     Dosage: UNK
     Route: 048
     Dates: start: 19991014, end: 19991021
  13. PREDNISONE [Concomitant]
     Active Substance: PREDNISONE
     Indication: Product used for unknown indication
     Dosage: UNK
     Route: 048
     Dates: start: 19991104, end: 19991104
  14. LEVOFLOXACIN [Concomitant]
     Active Substance: LEVOFLOXACIN
     Indication: Product used for unknown indication
     Dosage: 500
     Route: 042
     Dates: start: 19991104, end: 19991104
  15. SOLU DACORTIN H [Concomitant]
     Indication: Product used for unknown indication
     Dosage: UNK
     Route: 048
     Dates: start: 19991104, end: 19991104
  16. BACITRACIN ZINC\NEOMYCIN SULFATE [Concomitant]
     Active Substance: BACITRACIN ZINC\NEOMYCIN SULFATE
     Indication: Herpes zoster
     Route: 048
     Dates: start: 19991011, end: 19991014
  17. STILLACOR [Concomitant]
     Indication: Cardiac failure
     Dosage: 0.2
     Route: 048
  18. ACYCLOVIR [Concomitant]
     Active Substance: ACYCLOVIR
     Indication: Herpes zoster
     Dosage: UNK
     Route: 048
     Dates: start: 19991011, end: 19991014
  19. BRISERIN [Concomitant]
     Indication: Essential hypertension
     Dosage: UNK
     Route: 048
  20. ACYCLOVIR [Concomitant]
     Active Substance: ACYCLOVIR
     Indication: Herpes zoster
     Route: 048
     Dates: start: 19991014, end: 19991019
  21. ISMO [Concomitant]
     Active Substance: ISOSORBIDE MONONITRATE
     Indication: Cardiac failure
     Dosage: UNK
     Route: 048
  22. CLEMASTINE FUMARATE [Concomitant]
     Active Substance: CLEMASTINE FUMARATE
     Indication: Product used for unknown indication
     Dosage: UNK
     Route: 048
     Dates: start: 19991104, end: 19991104

REACTIONS (15)
  - Mucosal erosion [Recovered/Resolved]
  - Pruritus [Recovered/Resolved]
  - Stevens-Johnson syndrome [Recovered/Resolved]
  - Toxic epidermal necrolysis [Recovered/Resolved]
  - Conjunctivitis [Recovered/Resolved]
  - Blister [Recovered/Resolved]
  - Genital ulceration [Recovered/Resolved]
  - Skin swelling [Recovered/Resolved]
  - Erythema [Recovered/Resolved]
  - Pyrexia [Recovered/Resolved]
  - Lymphocyte count increased [Unknown]
  - Aspartate aminotransferase increased [Unknown]
  - Blood lactate dehydrogenase increased [Unknown]
  - Gamma-glutamyltransferase increased [Unknown]
  - Alanine aminotransferase increased [Unknown]

NARRATIVE: CASE EVENT DATE: 19991030
